FAERS Safety Report 18970994 (Version 1)
Quarter: 2021Q1

REPORT INFORMATION
  Report Type: Spontaneous
  Country: US (occurrence: US)
  Receive Date: 20210305
  Receipt Date: 20210305
  Transmission Date: 20210420
  Serious: No
  Sender: FDA-Public Use
  Company Number: US-SA-2021SA070467

PATIENT
  Sex: Female
  Weight: 90.25 kg

DRUGS (14)
  1. MAGNESIUM [Concomitant]
     Active Substance: MAGNESIUM
  2. DULOXETINE HCL [Concomitant]
     Active Substance: DULOXETINE HYDROCHLORIDE
  3. OMEPRAZOLE. [Concomitant]
     Active Substance: OMEPRAZOLE
  4. AUBAGIO [Suspect]
     Active Substance: TERIFLUNOMIDE
     Indication: MULTIPLE SCLEROSIS
     Route: 048
  5. VITAMIN D NOS [Concomitant]
     Active Substance: VITAMIN D NOS
     Dosage: 100MG
  6. VITAMIN B12 [COBAMAMIDE] [Concomitant]
     Active Substance: COBAMAMIDE
  7. VITAMIN D NOS [Concomitant]
     Active Substance: VITAMIN D NOS
  8. ZETIA [Concomitant]
     Active Substance: EZETIMIBE
  9. LASIX [Concomitant]
     Active Substance: FUROSEMIDE
  10. TRILEPTAL [Concomitant]
     Active Substance: OXCARBAZEPINE
     Dosage: 300MG
  11. GABAPENTIN. [Concomitant]
     Active Substance: GABAPENTIN
  12. NEXIUM [Concomitant]
     Active Substance: ESOMEPRAZOLE MAGNESIUM
  13. VITAMINS NOS [Concomitant]
     Active Substance: VITAMINS
  14. POTASSIUM [Concomitant]
     Active Substance: POTASSIUM

REACTIONS (3)
  - Formication [Recovered/Resolved]
  - Gait disturbance [Unknown]
  - Sensory disturbance [Unknown]
